FAERS Safety Report 6691698-6 (Version None)
Quarter: 2010Q2

REPORT INFORMATION
  Report Type: 
  Country: None (occurrence: None)
  Receive Date: 20100422
  Receipt Date: 20090717
  Transmission Date: 20101027
  Serious: No
  Sender: FDA-Public Use
  Company Number: US-ASTRAZENECA-2009SE05227

PATIENT
  Age: 68 Year
  Sex: Female

DRUGS (2)
  1. METOPROLOL SUCCINATE [Suspect]
     Route: 048
     Dates: start: 20070101
  2. TOPROL-XL [Suspect]
     Route: 048
     Dates: start: 20090606

REACTIONS (8)
  - ASTHENIA [None]
  - CONSTIPATION [None]
  - DECREASED APPETITE [None]
  - DYSPHAGIA [None]
  - DYSPNOEA [None]
  - FLATULENCE [None]
  - FLUSHING [None]
  - NAUSEA [None]
